FAERS Safety Report 22751549 (Version 2)
Quarter: 2024Q1

REPORT INFORMATION
  Report Type: Spontaneous
  Country: US (occurrence: US)
  Receive Date: 20230726
  Receipt Date: 20240211
  Transmission Date: 20240410
  Serious: No
  Sender: FDA-Public Use
  Company Number: US-SA-SAC20230725000397

PATIENT
  Age: 62 Year
  Sex: Female

DRUGS (2)
  1. DUPIXENT [Suspect]
     Active Substance: DUPILUMAB
     Indication: Dermatitis atopic
     Dosage: 600 MG, 1X
     Route: 058
     Dates: start: 20230627, end: 20230627
  2. DUPIXENT [Suspect]
     Active Substance: DUPILUMAB
     Dosage: 300 MG: QOW
     Route: 058
     Dates: start: 20230719

REACTIONS (3)
  - Discomfort [Unknown]
  - Dermatitis atopic [Unknown]
  - Product preparation error [Unknown]

NARRATIVE: CASE EVENT DATE: 20230627
